FAERS Safety Report 15562700 (Version 1)
Quarter: 2018Q4

REPORT INFORMATION
  Report Type: Spontaneous
  Country: US (occurrence: US)
  Receive Date: 20181029
  Receipt Date: 20181029
  Transmission Date: 20190205
  Serious: Yes (Other)
  Sender: FDA-Public Use
  Company Number: US-JNJFOC-20181038795

PATIENT
  Sex: Male

DRUGS (20)
  1. IMBRUVICA [Suspect]
     Active Substance: IBRUTINIB
     Indication: MANTLE CELL LYMPHOMA
     Route: 065
     Dates: start: 20170202, end: 20170509
  2. IMBRUVICA [Suspect]
     Active Substance: IBRUTINIB
     Indication: MANTLE CELL LYMPHOMA
     Route: 065
     Dates: start: 20170510
  3. VOLTAREN [Concomitant]
     Active Substance: DICLOFENAC SODIUM
  4. ALLEGRA [Concomitant]
     Active Substance: FEXOFENADINE HYDROCHLORIDE
  5. FUROSEMIDE. [Concomitant]
     Active Substance: FUROSEMIDE
  6. GLIMEPIRIDE. [Concomitant]
     Active Substance: GLIMEPIRIDE
  7. ZINC. [Concomitant]
     Active Substance: ZINC
  8. AMLODIPINE [Concomitant]
     Active Substance: AMLODIPINE BESYLATE
  9. SAW PALMETTO [Concomitant]
     Active Substance: HERBALS\SAW PALMETTO
  10. SIMVASTATIN. [Concomitant]
     Active Substance: SIMVASTATIN
  11. KLOR-CON [Concomitant]
     Active Substance: POTASSIUM CHLORIDE
  12. ROPINIROLE. [Concomitant]
     Active Substance: ROPINIROLE
  13. SOTALOL. [Concomitant]
     Active Substance: SOTALOL
  14. METFORMIN [Concomitant]
     Active Substance: METFORMIN HYDROCHLORIDE
  15. LYRICA [Concomitant]
     Active Substance: PREGABALIN
  16. METAXALONE. [Concomitant]
     Active Substance: METAXALONE
  17. CENTRUM [Concomitant]
     Active Substance: VITAMINS
  18. FISH OIL [Concomitant]
     Active Substance: FISH OIL
  19. TAMSULOSIN [Concomitant]
     Active Substance: TAMSULOSIN
  20. VITAMIN C [Concomitant]
     Active Substance: ASCORBIC ACID

REACTIONS (1)
  - Myocardial infarction [Unknown]
